FAERS Safety Report 8768287 (Version 1)
Quarter: 2012Q4

REPORT INFORMATION
  Report Type: 
  Country: US (occurrence: US)
  Receive Date: 20120904
  Receipt Date: 20120904
  Transmission Date: 20130627
  Serious: No
  Sender: FDA-Public Use
  Company Number: US-AMGEN-USASP2012050932

PATIENT
  Age: 57 Year
  Sex: Male
  Weight: 92.97 kg

DRUGS (5)
  1. ENBREL [Suspect]
     Indication: PSORIASIS
     Dosage: 50 mg, 2 times/wk
     Route: 058
     Dates: start: 20120731
  2. ENAPRIL H [Concomitant]
     Indication: HYPERTENSION
     Dosage: 10-25mg, qd
     Route: 048
     Dates: start: 20120724
  3. FENOFIBRAT [Concomitant]
     Indication: BLOOD CHOLESTEROL INCREASED
     Dosage: 160 mg, qd
     Route: 048
     Dates: start: 20120724
  4. ZOLOFT [Concomitant]
     Indication: DEPRESSION
     Dosage: 100 mg, qd
     Route: 048
     Dates: start: 20120724
  5. ROSUVASTATINE [Concomitant]
     Indication: BLOOD CHOLESTEROL INCREASED
     Dosage: 10 mg, qd
     Route: 048
     Dates: start: 20120724

REACTIONS (3)
  - Injection site erythema [Recovered/Resolved]
  - Injection site swelling [Recovered/Resolved]
  - Injection site pain [Recovered/Resolved]
